FAERS Safety Report 25318125 (Version 1)
Quarter: 2025Q2

REPORT INFORMATION
  Report Type: Spontaneous
  Country: US (occurrence: US)
  Receive Date: 20250515
  Receipt Date: 20250515
  Transmission Date: 20250717
  Serious: No
  Sender: ROCHE
  Company Number: US-ROCHE-10000274661

PATIENT
  Sex: Female

DRUGS (1)
  1. ACTEMRA [Suspect]
     Active Substance: TOCILIZUMAB
     Indication: Rheumatoid arthritis
     Route: 058
     Dates: start: 202502

REACTIONS (6)
  - Pruritus [Unknown]
  - Burning sensation [Unknown]
  - Eye pruritus [Unknown]
  - Ear pruritus [Unknown]
  - Ear discomfort [Unknown]
  - Eye irritation [Unknown]
